FAERS Safety Report 5142441-3 (Version None)
Quarter: 2006Q4

REPORT INFORMATION
  Report Type: 
  Country: None (occurrence: None)
  Receive Date: 20061027
  Receipt Date: 20061023
  Transmission Date: 20070319
  Serious: Yes (Death, Hospitalization)
  Sender: FDA-Public Use
  Company Number: 163-21880-06060035

PATIENT
  Age: 70 Year
  Sex: Male

DRUGS (5)
  1. REVLIMID [Suspect]
     Indication: MULTIPLE MYELOMA
     Dosage: 20 MG, DAILY FOR 21 DAYS, ORAL
     Route: 048
     Dates: start: 20060510, end: 20060515
  2. URSODIOL (URSODEOXYCHOLIC ACID) [Concomitant]
  3. ALLOPURINOL [Concomitant]
  4. ACYCLOVIR [Concomitant]
  5. CALCIUM CARBONATE (CALCIUM CARBONATE) [Concomitant]

REACTIONS (1)
  - ELECTROMECHANICAL DISSOCIATION [None]
